FAERS Safety Report 25727826 (Version 1)
Quarter: 2025Q3

REPORT INFORMATION
  Report Type: Spontaneous
  Country: US (occurrence: None)
  Receive Date: 20250826
  Receipt Date: 20250826
  Transmission Date: 20251021
  Serious: Yes (Hospitalization)
  Sender: FDA-CTU
  Company Number: None

PATIENT
  Sex: Female

DRUGS (2)
  1. APIXABAN [Suspect]
     Active Substance: APIXABAN
  2. CLOPIDOGREL [Suspect]
     Active Substance: CLOPIDOGREL BISULFATE

REACTIONS (8)
  - Gastrointestinal haemorrhage [None]
  - Fall [None]
  - Faecal occult blood positive [None]
  - Discomfort [None]
  - SARS-CoV-2 test positive [None]
  - Injury [None]
  - Hip fracture [None]
  - Radius fracture [None]

NARRATIVE: CASE EVENT DATE: 20241230
